FAERS Safety Report 4286614-0 (Version None)
Quarter: 2004Q1

REPORT INFORMATION
  Report Type: 
  Country: None (occurrence: None)
  Receive Date: 20040206
  Receipt Date: 20040121
  Transmission Date: 20041129
  Serious: Yes (Other)
  Sender: FDA-Public Use
  Company Number: PHBS2004BE01229

PATIENT
  Age: 93 Year
  Sex: Male

DRUGS (6)
  1. DIOVAN [Suspect]
     Indication: PROPHYLAXIS
     Dosage: 160 MG/DAY
     Route: 048
     Dates: start: 20030501, end: 20030601
  2. DIOVAN [Suspect]
     Dosage: 80 MG/DAY
     Route: 048
     Dates: start: 20030601
  3. LASIX [Concomitant]
     Dosage: 40 MG, TID
  4. ALDACTONE [Concomitant]
     Dosage: 100 MG/DAY
  5. KREDEX [Concomitant]
     Dosage: 6.25
  6. ASPIRIN [Concomitant]

REACTIONS (3)
  - HYPOTENSION [None]
  - LOSS OF CONSCIOUSNESS [None]
  - MALAISE [None]
